FAERS Safety Report 18099723 (Version 2)
Quarter: 2020Q3

REPORT INFORMATION
  Report Type: Spontaneous
  Country: US (occurrence: US)
  Receive Date: 20200731
  Receipt Date: 20200911
  Transmission Date: 20201103
  Serious: No
  Sender: FDA-Public Use
  Company Number: US-AMGEN-USASP2020120932

PATIENT
  Sex: Female

DRUGS (1)
  1. KANJINTI [Suspect]
     Active Substance: TRASTUZUMAB-ANNS
     Indication: PRODUCT USED FOR UNKNOWN INDICATION
     Dosage: UNK
     Route: 065

REACTIONS (12)
  - Dry mouth [Unknown]
  - Decreased appetite [Recovering/Resolving]
  - Food craving [Unknown]
  - Lip dry [Unknown]
  - Asthenia [Unknown]
  - Acne [Unknown]
  - Fatigue [Recovering/Resolving]
  - Pain [Unknown]
  - Dizziness [Recovering/Resolving]
  - Nausea [Unknown]
  - Headache [Unknown]
  - Somnolence [Unknown]
